FAERS Safety Report 9108630 (Version 6)
Quarter: 2014Q1

REPORT INFORMATION
  Report Type: Spontaneous
  Country: US (occurrence: US)
  Receive Date: 20130222
  Receipt Date: 20140312
  Transmission Date: 20141002
  Serious: Yes (Hospitalization)
  Sender: FDA-Public Use
  Company Number: US-BIOGENIDEC-2013BI015049

PATIENT
  Age: 48 Year
  Sex: Female

DRUGS (2)
  1. TYSABRI [Suspect]
     Indication: MULTIPLE SCLEROSIS
     Route: 042
     Dates: start: 20121025, end: 20121226
  2. GILENYA [Concomitant]
     Dates: end: 201206

REACTIONS (3)
  - Meningitis cryptococcal [Recovered/Resolved]
  - Cholecystectomy [Not Recovered/Not Resolved]
  - Stress [Not Recovered/Not Resolved]
